FAERS Safety Report 13899222 (Version 2)
Quarter: 2017Q4

REPORT INFORMATION
  Report Type: Report from Study
  Country: US (occurrence: US)
  Receive Date: 20170824
  Receipt Date: 20171010
  Transmission Date: 20180320
  Serious: Yes (Other)
  Sender: FDA-Public Use
  Company Number: US-SHIRE-US201713675

PATIENT
  Sex: Male

DRUGS (1)
  1. LIALDA [Suspect]
     Active Substance: MESALAMINE
     Indication: PRODUCT USED FOR UNKNOWN INDICATION
     Dosage: UNK, UNKNOWN
     Route: 048
     Dates: start: 20170223

REACTIONS (7)
  - Bowel movement irregularity [Unknown]
  - Prostate cancer [Unknown]
  - Shock [Unknown]
  - Diarrhoea [Unknown]
  - Nervousness [Unknown]
  - Drug ineffective [Unknown]
  - Feeling abnormal [Unknown]
